FAERS Safety Report 4683439-9 (Version None)
Quarter: 2005Q2

REPORT INFORMATION
  Report Type: 
  Country: None (occurrence: None)
  Receive Date: 20050607
  Receipt Date: 20050526
  Transmission Date: 20051028
  Serious: Yes (Death)
  Sender: FDA-Public Use
  Company Number: US-JNJFOC-20050507255

PATIENT
  Sex: Female

DRUGS (3)
  1. INFLIXIMAB [Suspect]
     Indication: RHEUMATOID ARTHRITIS
     Route: 042
     Dates: start: 20030623, end: 20040410
  2. METHOTREXATE [Concomitant]
  3. CELEBREX [Concomitant]

REACTIONS (1)
  - NEOPLASM MALIGNANT [None]
